FAERS Safety Report 14417376 (Version 1)
Quarter: 2018Q1

REPORT INFORMATION
  Report Type: Spontaneous
  Country: US (occurrence: US)
  Receive Date: 20180122
  Receipt Date: 20180122
  Transmission Date: 20180509
  Serious: No
  Sender: FDA-Public Use
  Company Number: US-ALLERGAN-1724658US

PATIENT
  Sex: Male

DRUGS (5)
  1. DORSOLOL [Concomitant]
     Indication: CONJUNCTIVITIS
     Dosage: UNK
     Route: 047
  2. PRED FORTE [Suspect]
     Active Substance: PREDNISOLONE ACETATE
     Indication: CONJUNCTIVITIS
     Dosage: UNK
     Route: 047
  3. DORSOLOL [Concomitant]
     Indication: UVEITIS
  4. COMBIGAN [Concomitant]
     Active Substance: BRIMONIDINE TARTRATE\TIMOLOL MALEATE
     Indication: PRODUCT USED FOR UNKNOWN INDICATION
     Dosage: UNK
     Route: 047
  5. PRED FORTE [Suspect]
     Active Substance: PREDNISOLONE ACETATE
     Indication: UVEITIS

REACTIONS (1)
  - Drug ineffective [Unknown]
